FAERS Safety Report 24715503 (Version 1)
Quarter: 2024Q4

REPORT INFORMATION
  Report Type: Spontaneous
  Country: US (occurrence: US)
  Receive Date: 20241210
  Receipt Date: 20241210
  Transmission Date: 20250115
  Serious: Yes (Other)
  Sender: PADAGIS
  Company Number: US-PADAGIS-2024PAD01882

PATIENT

DRUGS (5)
  1. MUPIROCIN [Suspect]
     Active Substance: MUPIROCIN
     Indication: Dermatitis bullous
     Dosage: UNK
     Route: 065
  2. CLINDAMYCIN PHOSPHATE [Suspect]
     Active Substance: CLINDAMYCIN PHOSPHATE
     Indication: Cellulitis
     Dosage: UNK
     Route: 065
  3. IODINE [Suspect]
     Active Substance: IODINE
     Indication: Dermatitis bullous
     Dosage: UNK
     Route: 065
  4. CEFAZOLIN [Suspect]
     Active Substance: CEFAZOLIN
     Indication: Cellulitis
     Dosage: UNK
     Route: 065
  5. TENOFOVIR [Concomitant]
     Active Substance: TENOFOVIR
     Indication: Hepatitis B
     Dosage: UNK
     Route: 065

REACTIONS (3)
  - Condition aggravated [Unknown]
  - Drug ineffective for unapproved indication [Unknown]
  - Product use in unapproved indication [Unknown]
